FAERS Safety Report 8566920-1 (Version None)
Quarter: 2012Q3

REPORT INFORMATION
  Report Type: 
  Country: None (occurrence: None)
  Receive Date: 20120803
  Receipt Date: 20111031
  Transmission Date: 20120928
  Serious: No
  Sender: FDA-Public Use
  Company Number: US-ABBOTT-11P-163-0869812-00

PATIENT
  Sex: Male
  Weight: 115.77 kg

DRUGS (2)
  1. NIASPAN [Suspect]
     Indication: LIPOPROTEIN (A) ABNORMAL
     Dosage: EVERY MORNING FOLLOWING ASA
     Dates: start: 20111028
  2. ASPIRIN [Concomitant]
     Indication: PROPHYLAXIS
     Dosage: EVERY MORNING

REACTIONS (4)
  - PAIN OF SKIN [None]
  - PARAESTHESIA [None]
  - FLUSHING [None]
  - ERYTHEMA [None]
